FAERS Safety Report 8985384 (Version 1)
Quarter: 2012Q4

REPORT INFORMATION
  Report Type: 
  Country: US (occurrence: US)
  Receive Date: 20121226
  Receipt Date: 20121226
  Transmission Date: 20130627
  Serious: Yes (Hospitalization, Other)
  Sender: FDA-Public Use
  Company Number: US-PFIZER INC-2012326479

PATIENT
  Age: 63 Year
  Sex: Female
  Weight: 125 kg

DRUGS (16)
  1. ATORVASTATIN CALCIUM [Suspect]
     Indication: STENT PLACEMENT
     Dosage: UNK, daily
     Route: 048
     Dates: start: 2009
  2. ATORVASTATIN CALCIUM [Suspect]
     Indication: HIGH CHOLESTEROL
  3. LORTAB [Concomitant]
     Indication: PAIN
     Dosage: 500/5 mg two times a day as needed
     Route: 048
  4. ALBUTEROL SULFATE [Concomitant]
     Dosage: 2 mg, every 6 hours
  5. ALPRAZOLAM [Concomitant]
     Indication: ANXIETY
     Dosage: 1 mg, two times a day as needed
     Route: 048
  6. ASPIRIN [Concomitant]
     Indication: ANTICOAGULANT THERAPY
     Dosage: 325 mg, daily
     Route: 048
  7. CYMBALTA [Concomitant]
     Indication: DEPRESSION
     Dosage: 60 mg, daily
     Route: 048
  8. FAMOTIDINE [Concomitant]
     Indication: BLOOD PRESSURE ABNORMAL
     Dosage: 20 mg, daily
     Route: 048
  9. FAMOTIDINE [Concomitant]
     Indication: HEART DISORDER
  10. FUROSEMIDE [Concomitant]
     Indication: HEART DISORDER
     Dosage: 40 mg, 2x/day
     Route: 048
  11. FUROSEMIDE [Concomitant]
     Indication: BLOOD PRESSURE ABNORMAL
  12. LISINOPRIL [Concomitant]
     Indication: HEART DISORDER
     Dosage: 5 mg, daily
     Route: 048
  13. LISINOPRIL [Concomitant]
     Indication: BLOOD PRESSURE ABNORMAL
  14. KOMBIGLYZE XR [Concomitant]
     Indication: DIABETES
     Dosage: 500/2.5 mg, 2x/day
     Route: 048
  15. METOPROLOL SUCCINATE [Concomitant]
     Indication: HEART DISORDER
     Dosage: 25 mg, daily
     Route: 048
  16. METOPROLOL SUCCINATE [Concomitant]
     Indication: BLOOD PRESSURE ABNORMAL

REACTIONS (2)
  - Pneumonia [Unknown]
  - Myocardial infarction [Unknown]
